FAERS Safety Report 9464521 (Version 3)
Quarter: 2014Q1

REPORT INFORMATION
  Report Type: Spontaneous
  Country: FR (occurrence: FR)
  Receive Date: 20130819
  Receipt Date: 20140310
  Transmission Date: 20141002
  Serious: Yes (Hospitalization, Congenital Anomaly, Other)
  Sender: FDA-Public Use
  Company Number: FR-JNJFOC-20130803572

PATIENT
  Sex: Female
  Weight: 2.28 kg

DRUGS (12)
  1. RISPERDAL CONSTA LAI [Suspect]
     Indication: PSYCHOTIC DISORDER
     Route: 064
     Dates: end: 20110527
  2. HALDOL DECANOAS [Suspect]
     Indication: SCHIZOPHRENIA
     Route: 064
     Dates: start: 20110601
  3. NOCTRAN [Suspect]
     Indication: SLEEP DISORDER
     Route: 064
     Dates: end: 20110601
  4. VALIUM [Suspect]
     Indication: CONVULSION PROPHYLAXIS
     Route: 064
     Dates: end: 20110601
  5. RIVOTRIL [Suspect]
     Indication: CONVULSION PROPHYLAXIS
     Route: 064
  6. DEPAKINE CHRONO [Suspect]
     Indication: CONVULSION PROPHYLAXIS
     Dosage: THE TABLET STRENGTH WAS 500 MG
     Route: 064
     Dates: end: 20130601
  7. LEPTICUR [Suspect]
     Indication: PRODUCT USED FOR UNKNOWN INDICATION
     Route: 064
  8. LOXAPAC [Suspect]
     Indication: PSYCHOTIC DISORDER
     Route: 064
     Dates: start: 201101, end: 20130601
  9. KEPPRA [Suspect]
     Indication: EPILEPSY
     Route: 064
     Dates: start: 20110601
  10. IMOVANE [Suspect]
     Indication: SLEEP DISORDER
     Route: 064
     Dates: start: 20110601
  11. SULFARLEM [Suspect]
     Indication: PRODUCT USED FOR UNKNOWN INDICATION
     Route: 065
     Dates: end: 20110721
  12. AEQUASYAL [Suspect]
     Indication: PRODUCT USED FOR UNKNOWN INDICATION
     Route: 064
     Dates: start: 20110601

REACTIONS (2)
  - Cardiac murmur [Recovered/Resolved with Sequelae]
  - Foetal exposure during pregnancy [Recovered/Resolved]
